FAERS Safety Report 7122058-1 (Version None)
Quarter: 2010Q4

REPORT INFORMATION
  Report Type: 
  Country: None (occurrence: None)
  Receive Date: 20101124
  Receipt Date: 20101118
  Transmission Date: 20110411
  Serious: Yes (Other)
  Sender: FDA-Public Use
  Company Number: B0685357A

PATIENT
  Sex: Female
  Weight: 47 kg

DRUGS (21)
  1. ALKERAN [Suspect]
     Indication: STEM CELL TRANSPLANT
     Dosage: 100MG PER DAY
     Route: 042
     Dates: start: 20050711, end: 20050712
  2. NEUTROGIN [Concomitant]
     Dates: start: 20050715, end: 20050725
  3. NEUTROGIN [Concomitant]
     Dates: start: 20050804, end: 20050806
  4. NEUTROGIN [Concomitant]
     Dates: start: 20050818, end: 20050824
  5. BAKTAR [Concomitant]
     Route: 048
     Dates: start: 20050427, end: 20050718
  6. CRAVIT [Concomitant]
     Dosage: 300MG PER DAY
     Route: 048
     Dates: start: 20050704, end: 20050712
  7. ZOVIRAX [Concomitant]
     Dosage: 1000MG PER DAY
     Route: 048
     Dates: start: 20050709, end: 20050713
  8. ACYCLOVIR [Concomitant]
     Dosage: 750MG PER DAY
     Route: 042
     Dates: start: 20050714, end: 20050727
  9. GLOVENIN [Concomitant]
     Route: 042
     Dates: start: 20050707, end: 20050728
  10. DIFLUCAN [Concomitant]
     Dosage: 200MG PER DAY
     Route: 048
     Dates: start: 20041213, end: 20050713
  11. FLUCONAZOLE [Concomitant]
     Dosage: 200MG PER DAY
     Dates: start: 20050714, end: 20050728
  12. CIPROFLOXACIN HCL [Concomitant]
     Dosage: 300MG PER DAY
     Route: 042
     Dates: start: 20050713, end: 20050725
  13. SULPERAZON [Concomitant]
     Dosage: 2G PER DAY
     Route: 042
     Dates: start: 20050717, end: 20050721
  14. OMEGACIN [Concomitant]
     Dosage: 300MG PER DAY
     Route: 042
     Dates: start: 20050722, end: 20050728
  15. UNKNOWN DRUG [Concomitant]
     Dosage: 30MG TWO TIMES PER WEEK
     Dates: start: 20050729, end: 20060203
  16. THALIDOMIDE [Concomitant]
     Dosage: 100MG PER DAY
     Route: 048
     Dates: start: 20050926, end: 20060207
  17. ESPO [Concomitant]
     Dates: start: 20051011, end: 20051227
  18. RENIVACE [Concomitant]
     Dosage: 5MG PER DAY
     Route: 048
     Dates: start: 20050822, end: 20060219
  19. NORVASC [Concomitant]
     Dosage: 5MG PER DAY
     Route: 048
     Dates: start: 20041204, end: 20060219
  20. MICARDIS [Concomitant]
     Dosage: 40MG PER DAY
     Route: 048
     Dates: start: 20041204, end: 20060219
  21. ALEVIATIN [Concomitant]
     Dosage: 200MG PER DAY
     Route: 048
     Dates: start: 20050714, end: 20050802

REACTIONS (4)
  - CARDIAC FAILURE [None]
  - CONVULSION [None]
  - LOSS OF CONSCIOUSNESS [None]
  - RESPIRATORY FAILURE [None]
